FAERS Safety Report 8035513-7 (Version None)
Quarter: 2012Q1

REPORT INFORMATION
  Report Type: 
  Country: None (occurrence: None)
  Receive Date: 20120110
  Receipt Date: 20120110
  Transmission Date: 20120608
  Serious: No
  Sender: FDA-Public Use
  Company Number: None

PATIENT
  Age: 22 Year
  Sex: Male
  Weight: 68 kg

DRUGS (7)
  1. ZOFRAN [Concomitant]
  2. PROTONIX [Concomitant]
  3. ATIVAN [Concomitant]
  4. MORPHINE [Concomitant]
  5. ROCEPHIN [Concomitant]
  6. COMBIVENT [Concomitant]
  7. VANCOMYCIN [Suspect]
     Indication: MENINGITIS
     Dosage: 1 GM Q 6? IV
     Route: 042
     Dates: start: 20111016, end: 20111019

REACTIONS (2)
  - MUSCLE SPASMS [None]
  - RASH [None]
